FAERS Safety Report 10423934 (Version 1)
Quarter: 2014Q3

REPORT INFORMATION
  Report Type: Spontaneous
  Country: IE (occurrence: IE)
  Receive Date: 20140902
  Receipt Date: 20140902
  Transmission Date: 20150326
  Serious: Yes (Other)
  Sender: FDA-Public Use
  Company Number: IE-TEVA-505487ISR

PATIENT
  Age: 26 Year
  Sex: Male
  Weight: 77 kg

DRUGS (4)
  1. CISPLATIN. [Suspect]
     Active Substance: CISPLATIN
     Indication: SEMINOMA
     Route: 065
  2. BLEOMYCIN [Suspect]
     Active Substance: BLEOMYCIN SULFATE
     Indication: SEMINOMA
     Route: 065
  3. ETOPOSIDE. [Concomitant]
     Active Substance: ETOPOSIDE
     Indication: SEMINOMA
     Route: 065
  4. IFOSFAMIDE. [Concomitant]
     Active Substance: IFOSFAMIDE
     Indication: SEMINOMA
     Route: 065

REACTIONS (3)
  - Drug ineffective [Unknown]
  - Pulmonary embolism [Unknown]
  - Cerebrovascular accident [Recovering/Resolving]
